FAERS Safety Report 11008262 (Version 1)
Quarter: 2015Q1

REPORT INFORMATION
  Report Type: Spontaneous
  Country: US (occurrence: None)
  Receive Date: 20150313
  Receipt Date: 20150313
  Transmission Date: 20150721
  Serious: Yes (Other)
  Sender: FDA-Public Use
  Company Number: 1398420

PATIENT
  Age: 61 Year
  Sex: Female

DRUGS (7)
  1. XOLAIR [Suspect]
     Active Substance: OMALIZUMAB
     Indication: ASTHMA
     Dates: start: 2004
  2. ENALAPRIL MALEATE (ENALAPRIL MALEATE) [Concomitant]
     Active Substance: ENALAPRIL MALEATE
  3. HYDROCHLOROTHIAZIDE (HYDROCHLOROTHIAZIDE) [Concomitant]
     Active Substance: HYDROCHLOROTHIAZIDE
  4. EPIPEN 2-PAK (EPINEPHRINE) [Concomitant]
  5. XOPENEX (LEVOSALBUTAMOL HYDROCHLORIDE) [Concomitant]
  6. XOPENEX HFA (LEVALBUTEROL TARTRATE) [Concomitant]
  7. LIPITOR [Concomitant]
     Active Substance: ATORVASTATIN CALCIUM
     Dosage: 300 MG, 1 IN 4 WK, UNKNOWN

REACTIONS (6)
  - Paraesthesia oral [None]
  - Throat tightness [None]
  - Dyspnoea [None]
  - Blood pressure increased [None]
  - Cough [None]
  - Chest discomfort [None]

NARRATIVE: CASE EVENT DATE: 20140507
